FAERS Safety Report 6879981-2 (Version None)
Quarter: 2010Q3

REPORT INFORMATION
  Report Type: 
  Country: None (occurrence: None)
  Receive Date: 20100728
  Receipt Date: 20100715
  Transmission Date: 20110219
  Serious: Yes (Hospitalization, Other)
  Sender: FDA-Public Use
  Company Number: PHHY2010JP23500

PATIENT
  Sex: Female
  Weight: 45 kg

DRUGS (14)
  1. DIOVAN [Suspect]
     Indication: HYPERTENSION
     Dosage: 160 MG, QD
     Route: 048
     Dates: start: 20071106, end: 20090303
  2. PERINDOPRIL ERBUMINE [Concomitant]
     Indication: HYPERTENSION
     Dosage: 4 MG
     Route: 048
     Dates: start: 20071108, end: 20090303
  3. DOXAZOSIN MESYLATE [Concomitant]
     Indication: HYPERTENSION
     Dosage: 8 MG
     Route: 048
     Dates: start: 20071106, end: 20090303
  4. ADALAT CC [Concomitant]
     Indication: HYPERTENSION
     Dosage: 10 MG
     Route: 048
     Dates: start: 20071106
  5. ARTIST [Concomitant]
     Indication: HYPERTENSION
     Dosage: 2.5 MG
     Route: 048
     Dates: start: 20080617
  6. PURSENNID [Concomitant]
     Dosage: 3 DF
     Route: 048
     Dates: start: 20030515
  7. NOVORAPID [Concomitant]
     Dosage: 54 IU
     Route: 058
     Dates: start: 20070213
  8. LANTUS [Concomitant]
     Dosage: 28 IU
     Route: 058
     Dates: start: 20070213
  9. METHYCOBAL [Concomitant]
     Dosage: 1500 MICRO GRAM
     Route: 048
     Dates: start: 20070916
  10. ASPIRIN [Concomitant]
     Dosage: 100 MG
     Route: 048
     Dates: start: 20040701
  11. BASEN [Concomitant]
     Dosage: 0.9 MG
     Route: 048
     Dates: start: 20010712, end: 20071211
  12. MIGLITOL [Concomitant]
     Dosage: 100 MG, UNK
     Route: 048
     Dates: start: 20071212
  13. TAKEPRON [Concomitant]
     Dosage: 15 MG
     Route: 048
     Dates: start: 20090203
  14. ALOSENN [Concomitant]
     Dosage: 1 G
     Route: 048
     Dates: start: 20090303

REACTIONS (3)
  - BLOOD PRESSURE DECREASED [None]
  - BLOOD PRESSURE INCREASED [None]
  - MALAISE [None]
